FAERS Safety Report 6109175-X (Version None)
Quarter: 2009Q1

REPORT INFORMATION
  Report Type: 
  Country: None (occurrence: None)
  Receive Date: 20090310
  Receipt Date: 20090305
  Transmission Date: 20090719
  Serious: Yes (Death)
  Sender: FDA-Public Use
  Company Number: PHHO2009AR03205

PATIENT
  Sex: Female
  Weight: 56.4 kg

DRUGS (3)
  1. STARLIX DJN+TAB [Suspect]
     Indication: GLUCOSE TOLERANCE IMPAIRED
     Dosage: 60 MG, TID
     Route: 048
     Dates: start: 20020806
  2. PLACEBO [Suspect]
     Indication: CARDIOVASCULAR DISORDER
     Dosage: LEVEL 1
     Route: 048
     Dates: start: 20020806
  3. PLACEBO [Suspect]
     Dosage: LEVEL 2
     Route: 048

REACTIONS (1)
  - SUDDEN DEATH [None]
